FAERS Safety Report 10708243 (Version 1)
Quarter: 2015Q1

REPORT INFORMATION
  Report Type: Spontaneous
  Country: US (occurrence: US)
  Receive Date: 20150113
  Receipt Date: 20150113
  Transmission Date: 20150721
  Serious: Yes (Other)
  Sender: FDA-Public Use
  Company Number: US-LUNDBECK-DKLU1107415

PATIENT
  Sex: Female

DRUGS (7)
  1. SABRIL [Suspect]
     Active Substance: VIGABATRIN
     Route: 048
  2. SABRIL [Suspect]
     Active Substance: VIGABATRIN
     Route: 048
  3. SABRIL [Suspect]
     Active Substance: VIGABATRIN
     Route: 048
  4. KEPPRA [Concomitant]
     Active Substance: LEVETIRACETAM
     Indication: PRODUCT USED FOR UNKNOWN INDICATION
  5. ACTH [Concomitant]
     Active Substance: CORTICOTROPIN
     Indication: PRODUCT USED FOR UNKNOWN INDICATION
  6. SABRIL [Suspect]
     Active Substance: VIGABATRIN
     Indication: INFANTILE SPASMS
     Route: 048
     Dates: start: 20140404
  7. SABRIL [Suspect]
     Active Substance: VIGABATRIN
     Route: 048

REACTIONS (2)
  - Seizure [Unknown]
  - Incorrect dose administered [Unknown]
